FAERS Safety Report 7738604-0 (Version None)
Quarter: 2011Q3

REPORT INFORMATION
  Report Type: 
  Country: None (occurrence: None)
  Receive Date: 20110908
  Receipt Date: 20110830
  Transmission Date: 20111222
  Serious: Yes (Other)
  Sender: FDA-Public Use
  Company Number: US-ASTRAZENECA-2011SE47774

PATIENT
  Age: 49 Year
  Sex: Male

DRUGS (1)
  1. NEXIUM [Suspect]
     Route: 048

REACTIONS (6)
  - GASTRIC ULCER HAEMORRHAGE [None]
  - HAEMOPTYSIS [None]
  - APHAGIA [None]
  - DISCOMFORT [None]
  - WEIGHT DECREASED [None]
  - DRUG DOSE OMISSION [None]
